FAERS Safety Report 4808615-3 (Version None)
Quarter: 2005Q4

REPORT INFORMATION
  Report Type: 
  Country: None (occurrence: None)
  Receive Date: 20051021
  Receipt Date: 20040103
  Transmission Date: 20060501
  Serious: Yes (Other)
  Sender: FDA-Public Use
  Company Number: DE_050114990

PATIENT
  Age: 55 Year
  Sex: Female
  Weight: 66 kg

DRUGS (4)
  1. ZYPREXA [Suspect]
     Indication: PSYCHOTIC DISORDER
     Dosage: 10 MG DAY
     Dates: start: 20041223, end: 20050102
  2. ENALAPRIL MALEATE [Suspect]
  3. DIPIPERON (PIPAMPERONE HYDROCHLORIDE) [Concomitant]
  4. SOLIAN (AMISULPRIDE0 [Concomitant]

REACTIONS (2)
  - CONDITION AGGRAVATED [None]
  - PLATELET COUNT DECREASED [None]
